FAERS Safety Report 19367809 (Version 1)
Quarter: 2021Q2

REPORT INFORMATION
  Report Type: Spontaneous
  Country: US (occurrence: US)
  Receive Date: 20210602
  Receipt Date: 20210602
  Transmission Date: 20210717
  Serious: No
  Sender: FDA-Public Use
  Company Number: US-ROCHE-2626764

PATIENT
  Sex: Male
  Weight: 129.39 kg

DRUGS (1)
  1. OCREVUS [Suspect]
     Active Substance: OCRELIZUMAB
     Indication: RELAPSING MULTIPLE SCLEROSIS
     Dosage: ONGOING YES
     Route: 042

REACTIONS (2)
  - CD4 lymphocytes decreased [Not Recovered/Not Resolved]
  - CD8 lymphocytes decreased [Not Recovered/Not Resolved]
